FAERS Safety Report 10645631 (Version 1)
Quarter: 2014Q4

REPORT INFORMATION
  Report Type: Report from Study
  Country: CA (occurrence: CA)
  Receive Date: 20141211
  Receipt Date: 20141211
  Transmission Date: 20150529
  Serious: Yes (Other)
  Sender: FDA-Public Use
  Company Number: CA-JNJFOC-20141203675

PATIENT
  Sex: Male
  Weight: 88.45 kg

DRUGS (1)
  1. REMICADE [Suspect]
     Active Substance: INFLIXIMAB
     Indication: COLITIS ULCERATIVE
     Route: 042
     Dates: end: 201409

REACTIONS (4)
  - Drug ineffective [Unknown]
  - Colectomy [Unknown]
  - Colitis ulcerative [Unknown]
  - Drug specific antibody present [Unknown]
